FAERS Safety Report 9000061 (Version 1)
Quarter: 2013Q1

REPORT INFORMATION
  Report Type: Spontaneous
  Country: FR (occurrence: FR)
  Receive Date: 20130102
  Receipt Date: 20130102
  Transmission Date: 20140127
  Serious: Yes (Hospitalization, Other)
  Sender: FDA-Public Use
  Company Number: FR-PFIZER INC-2012292367

PATIENT
  Age: 22 Year
  Sex: Male

DRUGS (1)
  1. SUTENT [Suspect]
     Indication: RENAL CANCER
     Dosage: 50 MG, 1X/DAY
     Route: 048
     Dates: start: 20120915

REACTIONS (9)
  - Infection [Recovering/Resolving]
  - Tumour lysis syndrome [Unknown]
  - General physical health deterioration [Unknown]
  - Blood albumin increased [Unknown]
  - Anaemia [Unknown]
  - Blood creatine phosphokinase increased [Unknown]
  - Blood lactate dehydrogenase increased [Unknown]
  - Jaundice [Unknown]
  - Platelet count decreased [Unknown]
